FAERS Safety Report 9470000 (Version 2)
Quarter: 2013Q3

REPORT INFORMATION
  Report Type: Spontaneous
  Country: BR (occurrence: BR)
  Receive Date: 20130822
  Receipt Date: 20130925
  Transmission Date: 20140515
  Serious: Yes (Other)
  Sender: FDA-Public Use
  Company Number: BR-JNJFOC-20130807758

PATIENT
  Age: 20 Month
  Sex: 0

DRUGS (3)
  1. REMICADE [Suspect]
     Indication: CROHN^S DISEASE
     Route: 042
  2. HYDROXYZINE [Concomitant]
     Indication: PREMEDICATION
     Route: 065
  3. PREDNISONE [Concomitant]
     Indication: PREMEDICATION
     Route: 065

REACTIONS (5)
  - Infusion related reaction [Unknown]
  - Lip oedema [Unknown]
  - Ear swelling [Unknown]
  - Incorrect drug administration rate [Unknown]
  - Off label use [Unknown]
